FAERS Safety Report 4696394-2 (Version None)
Quarter: 2005Q2

REPORT INFORMATION
  Report Type: 
  Country: None (occurrence: None)
  Receive Date: 20050620
  Receipt Date: 20050610
  Transmission Date: 20051028
  Serious: Yes (Other)
  Sender: FDA-Public Use
  Company Number: HQWYE382213JUN05

PATIENT
  Age: 65 Year
  Sex: Male
  Weight: 75.36 kg

DRUGS (9)
  1. RAPAMUNE [Suspect]
     Indication: PROPHYLAXIS AGAINST TRANSPLANT REJECTION
     Dosage: 5 MG 1X PER 1 DAY; ORAL
     Route: 048
     Dates: start: 20020416, end: 20050609
  2. ASPIRIN [Concomitant]
  3. ASPIRIN [Concomitant]
  4. MULTIVITAMINS, PLAIN [Concomitant]
  5. BACTRIM DS [Concomitant]
  6. CALCIUM CARBONATE [Concomitant]
  7. ATENOLOL [Concomitant]
  8. IRBESARTAN [Concomitant]
  9. ATORVASTATIN CALCIUM [Concomitant]

REACTIONS (1)
  - NEUROENDOCRINE CARCINOMA OF THE SKIN [None]
